FAERS Safety Report 4949252-X (Version None)
Quarter: 2006Q1

REPORT INFORMATION
  Report Type: 
  Country: None (occurrence: None)
  Receive Date: 20060321
  Receipt Date: 20060303
  Transmission Date: 20060701
  Serious: Yes (Hospitalization)
  Sender: FDA-Public Use
  Company Number: PHBS2006JP03607

PATIENT
  Sex: Female

DRUGS (3)
  1. PREDONINE [Concomitant]
     Indication: JUVENILE ARTHRITIS
     Dosage: 40 MG/D
     Route: 048
  2. PREDONINE [Concomitant]
     Dosage: 15 MG/D
     Route: 048
  3. NEORAL [Suspect]
     Indication: JUVENILE ARTHRITIS
     Dosage: 150 MG/D
     Route: 048

REACTIONS (1)
  - IDIOPATHIC THROMBOCYTOPENIC PURPURA [None]
